FAERS Safety Report 14580244 (Version 1)
Quarter: 2018Q1

REPORT INFORMATION
  Report Type: Spontaneous
  Country: US (occurrence: US)
  Receive Date: 20180228
  Receipt Date: 20180228
  Transmission Date: 20180509
  Serious: Yes (Other)
  Sender: FDA-Public Use
  Company Number: US-B.I. PHARMACEUTICALS,INC./RIDGEFIELD-2017-BI-067783

PATIENT
  Age: 80 Year
  Sex: Male
  Weight: 199 kg

DRUGS (13)
  1. OFEV [Suspect]
     Active Substance: NINTEDANIB
     Indication: IDIOPATHIC PULMONARY FIBROSIS
     Route: 048
     Dates: start: 201707, end: 201711
  2. ROSUVASTATIN. [Concomitant]
     Active Substance: ROSUVASTATIN
     Indication: HYPERLIPIDAEMIA
     Dosage: ONCE DAILY;  FORM STRENGTH: 20MG; FORMULATION: TABLET
     Route: 048
     Dates: start: 20170921
  3. ADVAIR HFA [Concomitant]
     Active Substance: FLUTICASONE PROPIONATE\SALMETEROL XINAFOATE
     Indication: IDIOPATHIC PULMONARY FIBROSIS
     Dosage: ONCE DAILY;  FORM STRENGTH: 250/50MG; FORMULATION: INHALATION SPRAY
     Route: 055
     Dates: start: 2011
  4. COQ10 [Concomitant]
     Active Substance: UBIDECARENONE
     Indication: SUPPLEMENTATION THERAPY
     Dosage: ONCE DAILY;  FORM STRENGTH: 1000MG; FORMULATION: CAPSULE
     Route: 048
  5. GLUCOSAMINE CHONDROITIN [Concomitant]
     Active Substance: CHONDROITIN SULFATE (BOVINE)\GLUCOSAMINE HYDROCHLORIDE
     Indication: ARTHROPATHY
     Dosage: ONCE DAILY;  FORM STRENGTH: 200MG; FORMULATION: TABLET
     Route: 048
  6. VITAMIN B COMPLEX [Concomitant]
     Active Substance: CYANOCOBALAMIN\DEXPANTHENOL\NIACINAMIDE\PYRIDOXINE HYDROCHLORIDE\RIBOFLAVIN 5^-PHOSPHATE SODIUM\THIAMINE HYDROCHLORIDE\VITAMIN B COMPLEX
     Indication: SUPPLEMENTATION THERAPY
     Dosage: ONCE DAILY;  FORMULATION: TABLET;
     Route: 048
  7. VITAMIN D3 [Concomitant]
     Active Substance: CHOLECALCIFEROL
     Indication: SUPPLEMENTATION THERAPY
     Dosage: ONCE DAILY;  FORM STRENGTH: 1000IU; FORMULATION: TABLET
     Route: 048
  8. LEVOTHYROXINE. [Concomitant]
     Active Substance: LEVOTHYROXINE
     Indication: HYPOTHYROIDISM
     Dosage: ONCE DAILY;  FORM STRENGTH: 88MCG; FORMULATION: TABLET
     Route: 048
  9. ACIDOPHILUS [Concomitant]
     Active Substance: LACTOBACILLUS ACIDOPHILUS
     Indication: SUPPLEMENTATION THERAPY
     Dosage: ONCE DAILY;  FORM STRENGTH: 100 MILLION; FORMULATION: TABLET
     Route: 048
  10. OFEV [Suspect]
     Active Substance: NINTEDANIB
     Route: 048
  11. OFEV [Suspect]
     Active Substance: NINTEDANIB
     Dosage: ADMINISTRATION CORRECT? YES ?ACTION(S) TAKEN WITH PRODUCT: DRUG WITHDRAWN
     Route: 048
     Dates: start: 201709, end: 20171206
  12. ALBUTEROL. [Concomitant]
     Active Substance: ALBUTEROL
     Indication: IDIOPATHIC PULMONARY FIBROSIS
     Dosage: PRN;  FORM STRENGTH: 2.5MG/3CC; FORMULATION: INHALATION SOLUTION
     Route: 055
     Dates: start: 201707
  13. ASPIRIN. [Concomitant]
     Active Substance: ASPIRIN
     Indication: MYOCARDIAL INFARCTION
     Dosage: ONCE DAILY;  FORM STRENGTH: 81MG; FORMULATION: TABLET
     Route: 048
     Dates: start: 1994

REACTIONS (4)
  - Liver function test increased [Recovered/Resolved]
  - Diarrhoea [Recovered/Resolved]
  - Hepatic enzyme increased [Recovered/Resolved]
  - Decreased appetite [Recovered/Resolved]

NARRATIVE: CASE EVENT DATE: 201710
